FAERS Safety Report 4375981-5 (Version None)
Quarter: 2004Q2

REPORT INFORMATION
  Report Type: 
  Country: None (occurrence: None)
  Receive Date: 20040607
  Receipt Date: 20040521
  Transmission Date: 20050107
  Serious: Yes (Life-Threatening, Hospitalization)
  Sender: FDA-Public Use
  Company Number: DSA_24434_2004

PATIENT
  Age: 73 Year
  Sex: Male

DRUGS (3)
  1. RENIVACE [Suspect]
     Indication: HYPERTENSION
     Dosage: DF PO
     Route: 048
     Dates: start: 19990101
  2. NIFEDIPINE [Concomitant]
  3. AMLODIPINE BESYLATE [Concomitant]

REACTIONS (8)
  - ANGIONEUROTIC OEDEMA [None]
  - BLOOD PRESSURE DECREASED [None]
  - CONJUNCTIVAL HYPERAEMIA [None]
  - DYSPHASIA [None]
  - GENERALISED ERYTHEMA [None]
  - MACROGLOSSIA [None]
  - OEDEMA PERIPHERAL [None]
  - PRURITUS [None]
